FAERS Safety Report 11744269 (Version 2)
Quarter: 2015Q4

REPORT INFORMATION
  Report Type: Spontaneous
  Country: AU (occurrence: AU)
  Receive Date: 20151116
  Receipt Date: 20151119
  Transmission Date: 20160304
  Serious: Yes (Other)
  Sender: FDA-Public Use
  Company Number: AU-SA-2015SA178566

PATIENT
  Age: 60 Year
  Sex: Female

DRUGS (1)
  1. ARABLOC [Suspect]
     Active Substance: LEFLUNOMIDE
     Route: 065

REACTIONS (1)
  - Hip arthroplasty [Unknown]
